FAERS Safety Report 8546964-6 (Version None)
Quarter: 2012Q3

REPORT INFORMATION
  Report Type: 
  Country: None (occurrence: None)
  Receive Date: 20120727
  Receipt Date: 20120302
  Transmission Date: 20120928
  Serious: No
  Sender: FDA-Public Use
  Company Number: US-ASTRAZENECA-2012SE15126

PATIENT

DRUGS (6)
  1. SEROQUEL XR [Suspect]
     Indication: BIPOLAR DISORDER
     Route: 048
  2. LITHIUM CARBONATE [Concomitant]
  3. WALBUTERIN [Concomitant]
  4. RESPIDOL [Concomitant]
  5. LAMICTAL [Concomitant]
  6. ABILIFY [Concomitant]

REACTIONS (2)
  - WITHDRAWAL SYNDROME [None]
  - DRUG DOSE OMISSION [None]
